FAERS Safety Report 16352486 (Version 1)
Quarter: 2019Q2

REPORT INFORMATION
  Report Type: Spontaneous
  Country: US (occurrence: US)
  Receive Date: 20190524
  Receipt Date: 20190524
  Transmission Date: 20190711
  Serious: Yes (Hospitalization, Other)
  Sender: FDA-Public Use
  Company Number: US-APOTEX-2019AP014863

PATIENT
  Age: 69 Year
  Sex: Male

DRUGS (1)
  1. ZOLEDRONIC ACID INJECTION [Suspect]
     Active Substance: ZOLEDRONIC ACID
     Indication: PLASMA CELL MYELOMA
     Dosage: UNK, (EVERY THREE MONTHS)
     Route: 065

REACTIONS (6)
  - Actinomyces test positive [Recovering/Resolving]
  - Blindness [Not Recovered/Not Resolved]
  - Osteomyelitis [Recovering/Resolving]
  - Oroantral fistula [Recovered/Resolved]
  - Osteonecrosis of jaw [Recovering/Resolving]
  - Osteomyelitis bacterial [Recovering/Resolving]
